FAERS Safety Report 17551156 (Version 1)
Quarter: 2020Q1

REPORT INFORMATION
  Report Type: Spontaneous
  Country: ES (occurrence: ES)
  Receive Date: 20200317
  Receipt Date: 20200317
  Transmission Date: 20200409
  Serious: Yes (Hospitalization)
  Sender: FDA-Public Use
  Company Number: ES-MYLANLABS-2020M1028177

PATIENT
  Age: 34 Year
  Sex: Female

DRUGS (2)
  1. IBUPROFEN. [Suspect]
     Active Substance: IBUPROFEN
     Indication: HAND-FOOT-AND-MOUTH DISEASE
     Dosage: UNK
     Route: 048
     Dates: start: 20161110, end: 20161220
  2. DEFLAZACORT [Suspect]
     Active Substance: DEFLAZACORT
     Indication: HAND-FOOT-AND-MOUTH DISEASE
     Dosage: UNK
     Route: 048
     Dates: start: 20161110, end: 20161220

REACTIONS (1)
  - Toxic epidermal necrolysis [Recovered/Resolved]

NARRATIVE: CASE EVENT DATE: 20161213
